FAERS Safety Report 17916594 (Version 6)
Quarter: 2021Q3

REPORT INFORMATION
  Report Type: Spontaneous
  Country: BR (occurrence: BR)
  Receive Date: 20200619
  Receipt Date: 20210923
  Transmission Date: 20211014
  Serious: Yes (Death, Other)
  Sender: FDA-Public Use
  Company Number: BR-PFIZER INC-2020236011

PATIENT
  Age: 83 Year
  Sex: Female
  Weight: 50 kg

DRUGS (8)
  1. CLONAZEPAM. [Concomitant]
     Active Substance: CLONAZEPAM
     Dosage: 2 MG
  2. VALSARTAN. [Concomitant]
     Active Substance: VALSARTAN
     Dosage: 320 MG
  3. AMLODIPINE [Concomitant]
     Active Substance: AMLODIPINE BESYLATE
     Dosage: 10 MG
  4. SIMVASTATIN. [Concomitant]
     Active Substance: SIMVASTATIN
     Dosage: 40 MG
  5. OLANZAPINE. [Concomitant]
     Active Substance: OLANZAPINE
     Dosage: 10 MG
  6. NORTRIPTYLINE [Suspect]
     Active Substance: NORTRIPTYLINE
     Dosage: 20 MG
     Route: 048
     Dates: start: 20160307, end: 20160507
  7. SERTRALINE HCL [Suspect]
     Active Substance: SERTRALINE HYDROCHLORIDE
     Dosage: 150 MG
     Route: 048
     Dates: start: 20160307, end: 20160507
  8. DONEPEZIL. [Concomitant]
     Active Substance: DONEPEZIL
     Dosage: 10 MG

REACTIONS (11)
  - Chest pain [Unknown]
  - Facial pain [Unknown]
  - Agitation [Unknown]
  - Death [Fatal]
  - Cardiogenic shock [Unknown]
  - Electrocardiogram ST segment elevation [Unknown]
  - Myocardial necrosis marker increased [Unknown]
  - Respiratory distress [Unknown]
  - Stress cardiomyopathy [Unknown]
  - Ventricular hypokinesia [Unknown]
  - Poor peripheral circulation [Unknown]
